FAERS Safety Report 19903619 (Version 1)
Quarter: 2021Q4

REPORT INFORMATION
  Report Type: Spontaneous
  Country: IN (occurrence: IN)
  Receive Date: 20211001
  Receipt Date: 20211001
  Transmission Date: 20220303
  Serious: Yes (Death)
  Sender: FDA-Public Use
  Company Number: IN-ROCHE-2926023

PATIENT
  Age: 61 Year
  Sex: Male

DRUGS (1)
  1. ALECENSA [Suspect]
     Active Substance: ALECTINIB HYDROCHLORIDE
     Indication: Product used for unknown indication
     Route: 065

REACTIONS (3)
  - Neoplasm malignant [Fatal]
  - Headache [Fatal]
  - Brain oedema [Fatal]

NARRATIVE: CASE EVENT DATE: 20200309
